FAERS Safety Report 23567384 (Version 15)
Quarter: 2025Q1

REPORT INFORMATION
  Report Type: Spontaneous
  Country: US (occurrence: US)
  Receive Date: 20240226
  Receipt Date: 20250303
  Transmission Date: 20250409
  Serious: Yes (Death, Other)
  Sender: PFIZER
  Company Number: US-PFIZER INC-PV202400025405

PATIENT
  Age: 71 Year
  Sex: Female
  Weight: 63.2 kg

DRUGS (6)
  1. BRAFTOVI [Suspect]
     Active Substance: ENCORAFENIB
     Indication: Cholangiocarcinoma
     Dosage: 450 MG, DAILY (TAKE 6 CAPSULES)
     Route: 048
     Dates: start: 20240208
  2. BRAFTOVI [Suspect]
     Active Substance: ENCORAFENIB
     Indication: Metastases to bone
     Dosage: 450 MG, DAILY (TAKE 6 CAPSULES)
     Route: 048
     Dates: start: 20240227
  3. BRAFTOVI [Suspect]
     Active Substance: ENCORAFENIB
     Dosage: 450 MG, DAILY (TAKE 6 CAPSULES)
     Route: 048
     Dates: start: 20241217
  4. BRAFTOVI [Suspect]
     Active Substance: ENCORAFENIB
     Dosage: 450 MG, DAILY (TAKE 6 CAPSULES)
     Route: 048
  5. MEKTOVI [Suspect]
     Active Substance: BINIMETINIB
     Indication: Cholangiocarcinoma
     Dosage: 45 MG, 2X/DAY
     Route: 048
     Dates: start: 20240208
  6. MEKTOVI [Suspect]
     Active Substance: BINIMETINIB
     Indication: Metastases to bone
     Dosage: 45 MG, 2X/DAY
     Route: 048
     Dates: start: 20241217

REACTIONS (13)
  - Death [Fatal]
  - Off label use [Unknown]
  - Weight decreased [Unknown]
  - Sensation of foreign body [Unknown]
  - Dysphagia [Unknown]
  - Bone pain [Not Recovered/Not Resolved]
  - Pruritus [Unknown]
  - Decreased appetite [Unknown]
  - Nausea [Not Recovered/Not Resolved]
  - Arthralgia [Unknown]
  - Back pain [Unknown]
  - Fatigue [Not Recovered/Not Resolved]
  - Neoplasm progression [Unknown]

NARRATIVE: CASE EVENT DATE: 20250210
